FAERS Safety Report 9306041 (Version 1)
Quarter: 2013Q2

REPORT INFORMATION
  Report Type: Spontaneous
  Country: US (occurrence: None)
  Receive Date: 20130522
  Receipt Date: 20130522
  Transmission Date: 20140414
  Serious: Yes (Other)
  Sender: FDA-Public Use
  Company Number: None

PATIENT
  Age: 38 Year
  Sex: Female
  Weight: 98.88 kg

DRUGS (2)
  1. HYDROCODONE/ACETAMINOPHEN [Suspect]
     Indication: FIBROMYALGIA
     Route: 048
     Dates: start: 20120406, end: 20130523
  2. HYDROCODONE/ACETAMINOPHEN [Suspect]
     Route: 048
     Dates: start: 20120406, end: 20130523

REACTIONS (2)
  - Drug ineffective [None]
  - Product substitution issue [None]
